FAERS Safety Report 19166048 (Version 2)
Quarter: 2021Q2

REPORT INFORMATION
  Report Type: Report from Study
  Country: DE (occurrence: DE)
  Receive Date: 20210422
  Receipt Date: 20210507
  Transmission Date: 20210717
  Serious: Yes (Other)
  Sender: FDA-Public Use
  Company Number: DE-BEH-2021130681

PATIENT

DRUGS (1)
  1. HUMAN IMMUNOGLOBULIN (NON?COMPANY) [Suspect]
     Active Substance: HUMAN IMMUNOGLOBULIN G
     Indication: SEGMENTED HYALINISING VASCULITIS
     Dosage: 2 GRAM PER KILOGRAM OVER 5 DAYS, EVERY 25?28 DAYS
     Route: 042

REACTIONS (5)
  - Cardiovascular disorder [Unknown]
  - Dizziness [Unknown]
  - Nausea [Unknown]
  - No adverse event [Unknown]
  - Off label use [Unknown]
